FAERS Safety Report 5575590-6 (Version None)
Quarter: 2007Q4

REPORT INFORMATION
  Report Type: 
  Country: None (occurrence: None)
  Receive Date: 20071226
  Receipt Date: 20071218
  Transmission Date: 20080405
  Serious: Yes (Death)
  Sender: FDA-Public Use
  Company Number: 150

PATIENT
  Sex: Male

DRUGS (1)
  1. FAZACLO 100 MG ODT AZUR PHARM [Suspect]
     Dosage: 100 MG PO DAILY
     Route: 048
     Dates: start: 20070308, end: 20070912

REACTIONS (1)
  - RENAL FAILURE CHRONIC [None]
